FAERS Safety Report 9778968 (Version 1)
Quarter: 2013Q4

REPORT INFORMATION
  Report Type: Spontaneous
  Country: FR (occurrence: FR)
  Receive Date: 20131223
  Receipt Date: 20131223
  Transmission Date: 20140711
  Serious: Yes (Hospitalization)
  Sender: FDA-Public Use
  Company Number: FR-PFIZER INC-2013363249

PATIENT
  Age: 23 Year
  Sex: Female

DRUGS (3)
  1. MEDROL [Suspect]
     Indication: INFLUENZA
     Dosage: UNK
     Route: 048
     Dates: start: 20130213, end: 20130223
  2. CONTRACEPTIVE, UNSPECIFIED [Concomitant]
     Indication: ORAL CONTRACEPTION
     Dosage: UNK
     Route: 048
  3. AMOXICILLIN [Concomitant]
     Indication: INFLUENZA
     Dosage: UNK

REACTIONS (2)
  - Pancreatitis acute [Recovered/Resolved]
  - Abdominal pain upper [Recovered/Resolved]
